FAERS Safety Report 7096352-7 (Version None)
Quarter: 2010Q4

REPORT INFORMATION
  Report Type: 
  Country: None (occurrence: None)
  Receive Date: 20101111
  Receipt Date: 20090908
  Transmission Date: 20110411
  Serious: No
  Sender: FDA-Public Use
  Company Number: US-KINGPHARMUSA00001-K200901105

PATIENT
  Sex: Female
  Weight: 82.993 kg

DRUGS (7)
  1. AVINZA [Suspect]
     Indication: BACK PAIN
     Dosage: 90 MG, QD
     Route: 048
     Dates: start: 20090301
  2. AVINZA [Suspect]
     Dosage: 60 MG, QD
     Route: 048
     Dates: start: 20090201
  3. AVINZA [Suspect]
     Dosage: 30 MG, QD
     Route: 048
     Dates: start: 20090101
  4. SOMA [Concomitant]
     Indication: PAIN
     Dosage: 350 MG, QD
     Route: 048
  5. ZETIA [Concomitant]
     Dosage: UNK
  6. LIPITOR [Concomitant]
     Dosage: UNK
  7. SYNTHROID [Concomitant]
     Indication: THYROID DISORDER
     Dosage: UNK

REACTIONS (3)
  - DRUG DIVERSION [None]
  - DRUG INEFFECTIVE [None]
  - PAIN [None]
